FAERS Safety Report 6602696-2 (Version None)
Quarter: 2010Q1

REPORT INFORMATION
  Report Type: 
  Country: None (occurrence: None)
  Receive Date: 20100218
  Receipt Date: 20100204
  Transmission Date: 20100710
  Serious: Yes (Hospitalization)
  Sender: FDA-Public Use
  Company Number: 1000011862

PATIENT
  Age: 36 Year
  Sex: Female

DRUGS (10)
  1. ESCITALOPRAM [Suspect]
     Indication: BRIEF PSYCHOTIC DISORDER, WITH POSTPARTUM ONSET
     Dosage: ORAL
     Route: 048
     Dates: start: 20090901
  2. ESCITALOPRAM [Suspect]
     Indication: BRIEF PSYCHOTIC DISORDER, WITH POSTPARTUM ONSET
     Dosage: ORAL
     Route: 048
     Dates: start: 20091101
  3. ZYPREXA [Suspect]
     Indication: BRIEF PSYCHOTIC DISORDER, WITH POSTPARTUM ONSET
     Dosage: ORAL
     Route: 048
     Dates: start: 20090901
  4. ZYPREXA [Suspect]
     Indication: BRIEF PSYCHOTIC DISORDER, WITH POSTPARTUM ONSET
     Dosage: ORAL
     Route: 048
     Dates: start: 20091101
  5. SERESTA [Suspect]
     Indication: BRIEF PSYCHOTIC DISORDER, WITH POSTPARTUM ONSET
     Dosage: ORAL
     Route: 048
     Dates: start: 20090901
  6. SERESTA [Suspect]
     Indication: BRIEF PSYCHOTIC DISORDER, WITH POSTPARTUM ONSET
     Dosage: ORAL
     Route: 048
     Dates: start: 20091101
  7. COMBIVIR [Concomitant]
  8. KALETRA [Concomitant]
  9. ZYPREXA [Concomitant]
  10. SERESTA [Concomitant]

REACTIONS (2)
  - LEUKOPENIA [None]
  - NEUTROPENIA [None]
